FAERS Safety Report 5646912-2 (Version None)
Quarter: 2008Q1

REPORT INFORMATION
  Report Type: 
  Country: None (occurrence: None)
  Receive Date: 20080303
  Receipt Date: 20080225
  Transmission Date: 20080703
  Serious: Yes (Death, Hospitalization, Other)
  Sender: FDA-Public Use
  Company Number: FR-ELI_LILLY_AND_COMPANY-FR200802001287

PATIENT
  Age: 63 Year
  Sex: Male
  Weight: 67 kg

DRUGS (4)
  1. GEMZAR [Suspect]
     Indication: NON-SMALL CELL LUNG CANCER
     Dosage: 1250 MG/M2, UNKNOWN
     Route: 042
     Dates: start: 20080107, end: 20080114
  2. CISPLATIN [Concomitant]
     Indication: NON-SMALL CELL LUNG CANCER
     Dosage: UNK, UNKNOWN
     Route: 042
     Dates: start: 20080107, end: 20080114
  3. ZOPHREN [Concomitant]
     Dosage: UNK, UNKNOWN
     Route: 042
     Dates: start: 20080114, end: 20080116
  4. SOLU-MEDROL [Concomitant]
     Dosage: 80 MG, UNKNOWN
     Route: 042
     Dates: start: 20080107, end: 20080110

REACTIONS (4)
  - ASCITES INFECTION [None]
  - CARDIAC FAILURE [None]
  - GENERALISED OEDEMA [None]
  - PANCYTOPENIA [None]
